FAERS Safety Report 14128326 (Version 1)
Quarter: 2017Q4

REPORT INFORMATION
  Report Type: Spontaneous
  Country: US (occurrence: US)
  Receive Date: 20171025
  Receipt Date: 20171025
  Transmission Date: 20180321
  Serious: Yes (Hospitalization, Disabling, Other)
  Sender: FDA-Public Use
  Company Number: None

PATIENT
  Sex: Female
  Weight: 57.6 kg

DRUGS (1)
  1. KUTAPRESSIN SOLUTION (LIVER EXTRACT INJ) [Suspect]
     Active Substance: MAMMAL LIVER
     Indication: FATIGUE
     Dosage: OTHER FREQUENCY:FORGOT 1OR2 DAILY;OTHER ROUTE:INJECTION SUBMUSCULAR?
     Route: 058
     Dates: start: 19910301, end: 19910701

REACTIONS (4)
  - Psychotic disorder [None]
  - Hallucination, auditory [None]
  - Aggression [None]
  - Memory impairment [None]

NARRATIVE: CASE EVENT DATE: 19910701
